FAERS Safety Report 19240268 (Version 1)
Quarter: 2021Q2

REPORT INFORMATION
  Report Type: Other
  Country: US (occurrence: US)
  Receive Date: 20210511
  Receipt Date: 20210511
  Transmission Date: 20210717
  Serious: Yes (Other)
  Sender: FDA-Public Use
  Company Number: US-ROCHE-2823744

PATIENT
  Age: 63 Year
  Sex: Female

DRUGS (4)
  1. PREDNISONE. [Concomitant]
     Active Substance: PREDNISONE
  2. VEMURAFENIB. [Suspect]
     Active Substance: VEMURAFENIB
     Indication: THYROID CANCER
     Route: 065
  3. COBIMETINIB. [Suspect]
     Active Substance: COBIMETINIB
     Indication: THYROID CANCER
     Route: 065
  4. ATEZOLIZUMAB. [Suspect]
     Active Substance: ATEZOLIZUMAB
     Indication: THYROID CANCER
     Route: 065

REACTIONS (1)
  - Immune-mediated enterocolitis [Unknown]
